FAERS Safety Report 6199366-4 (Version None)
Quarter: 2009Q2

REPORT INFORMATION
  Report Type: 
  Country: None (occurrence: None)
  Receive Date: 20090519
  Receipt Date: 20090505
  Transmission Date: 20091009
  Serious: Yes (Other)
  Sender: FDA-Public Use
  Company Number: IPS_01572_2009

PATIENT
  Sex: Male

DRUGS (6)
  1. APO-GO (APO-GO - APOMORPHINE HYDROCHLORIDE) [Suspect]
     Indication: PARKINSON'S DISEASE
     Dosage: 130 MG FOR UNKNOWN FREQUENCY SUBCUTANEOUS
     Route: 058
     Dates: start: 20070801
  2. AMANTADINE HCL [Concomitant]
  3. STALEVO 100 [Concomitant]
  4. SINEMET [Concomitant]
  5. CLONAZEPAM [Concomitant]
  6. AMITRIPTLINE HYDROCHLORIDE TAB [Concomitant]

REACTIONS (2)
  - COOMBS DIRECT TEST POSITIVE [None]
  - EOSINOPHILIA [None]
